FAERS Safety Report 12609686 (Version 1)
Quarter: 2016Q3

REPORT INFORMATION
  Report Type: Report from Study
  Country: CN (occurrence: CN)
  Receive Date: 20160801
  Receipt Date: 20160801
  Transmission Date: 20161109
  Serious: Yes (Other)
  Sender: FDA-Public Use
  Company Number: CN-ROCHE-1793061

PATIENT

DRUGS (6)
  1. IRINOTECAN [Suspect]
     Active Substance: IRINOTECAN
     Indication: COLORECTAL CANCER METASTATIC
     Route: 065
  2. BEVACIZUMAB [Suspect]
     Active Substance: BEVACIZUMAB
     Indication: COLORECTAL CANCER METASTATIC
     Route: 065
  3. OXALIPLATIN. [Suspect]
     Active Substance: OXALIPLATIN
     Indication: COLORECTAL CANCER METASTATIC
     Route: 065
  4. LEUCOVORIN. [Suspect]
     Active Substance: LEUCOVORIN
     Indication: COLORECTAL CANCER METASTATIC
     Route: 065
  5. CAPECITABINE. [Suspect]
     Active Substance: CAPECITABINE
     Indication: COLORECTAL CANCER METASTATIC
     Route: 065
  6. FLUOROURACIL. [Suspect]
     Active Substance: FLUOROURACIL
     Indication: COLORECTAL CANCER METASTATIC
     Route: 065

REACTIONS (11)
  - Neurotoxicity [Unknown]
  - Cardiac failure [Recovered/Resolved]
  - Diarrhoea [Unknown]
  - Haemorrhage [Recovered/Resolved]
  - Fatigue [Unknown]
  - Vomiting [Unknown]
  - Hypertension [Unknown]
  - Bone marrow failure [Unknown]
  - Palmar-plantar erythrodysaesthesia syndrome [Unknown]
  - Nausea [Unknown]
  - Proteinuria [Unknown]
